FAERS Safety Report 6130003-0 (Version None)
Quarter: 2009Q1

REPORT INFORMATION
  Report Type: 
  Country: None (occurrence: None)
  Receive Date: 20090323
  Receipt Date: 20090323
  Transmission Date: 20090719
  Serious: Yes (Other)
  Sender: FDA-Public Use
  Company Number: None

PATIENT
  Age: 51 Year
  Sex: Female

DRUGS (2)
  1. GADOLINIUM [Suspect]
     Indication: NUCLEAR MAGNETIC RESONANCE IMAGING ABNORMAL
  2. MRI PROCEDURE [Suspect]

REACTIONS (6)
  - FIBROMYALGIA [None]
  - LYME DISEASE [None]
  - NEPHROGENIC SYSTEMIC FIBROSIS [None]
  - SCLERODERMA [None]
  - SYSTEMIC SCLEROSIS [None]
  - WEIGHT FLUCTUATION [None]
